FAERS Safety Report 7288607-8 (Version None)
Quarter: 2011Q1

REPORT INFORMATION
  Report Type: 
  Country: None (occurrence: None)
  Receive Date: 20110208
  Receipt Date: 20110208
  Transmission Date: 20110831
  Serious: No
  Sender: FDA-Public Use
  Company Number: None

PATIENT
  Sex: Female
  Weight: 63.5036 kg

DRUGS (2)
  1. OXYCONTIN [Suspect]
     Indication: ABDOMINAL PAIN
     Dosage: 2 TABLETS TWICE DAILY PO
     Route: 048
  2. OXYCONTIN [Suspect]
     Indication: ABDOMINAL PAIN
     Dosage: 2 TABLETS TWICE DAILY PO
     Route: 048

REACTIONS (8)
  - INCREASED VISCOSITY OF BRONCHIAL SECRETION [None]
  - PRODUCT SUBSTITUTION ISSUE [None]
  - QUALITY OF LIFE DECREASED [None]
  - DRUG INEFFECTIVE [None]
  - LUNG DISORDER [None]
  - WITHDRAWAL SYNDROME [None]
  - DEHYDRATION [None]
  - GASTROINTESTINAL DISORDER [None]
